FAERS Safety Report 24964479 (Version 2)
Quarter: 2025Q1

REPORT INFORMATION
  Report Type: Spontaneous
  Country: JP (occurrence: JP)
  Receive Date: 20250213
  Receipt Date: 20250306
  Transmission Date: 20250409
  Serious: Yes (Other)
  Sender: RANBAXY
  Company Number: JP-SUN PHARMACEUTICAL INDUSTRIES LTD-2025RR-493782

PATIENT
  Age: 68 Year
  Sex: Male

DRUGS (2)
  1. GEMZAR [Suspect]
     Active Substance: GEMCITABINE HYDROCHLORIDE
     Indication: Bladder cancer
     Route: 065
  2. PLATINOL [Suspect]
     Active Substance: CISPLATIN
     Indication: Bladder cancer
     Route: 065

REACTIONS (2)
  - Metastases to lung [Recovering/Resolving]
  - Disease progression [Recovering/Resolving]
